FAERS Safety Report 8760445 (Version 1)
Quarter: 2012Q4

REPORT INFORMATION
  Report Type: 
  Country: US (occurrence: US)
  Receive Date: 20120830
  Receipt Date: 20120830
  Transmission Date: 20130627
  Serious: Yes (Death)
  Sender: FDA-Public Use
  Company Number: PHEH2012US016904

PATIENT

DRUGS (1)
  1. RECLAST [Suspect]
     Indication: SENILE OSTEOPOROSIS
     Dosage: 5 mg once annually
     Route: 042
     Dates: start: 20111004

REACTIONS (4)
  - Dementia [Fatal]
  - Failure to thrive [Fatal]
  - Diabetes mellitus [Fatal]
  - Anaemia [Fatal]
